FAERS Safety Report 11873989 (Version 2)
Quarter: 2016Q1

REPORT INFORMATION
  Report Type: Spontaneous
  Country: US (occurrence: US)
  Receive Date: 20151229
  Receipt Date: 20160211
  Transmission Date: 20160526
  Serious: No
  Sender: FDA-Public Use
  Company Number: US-AMGEN-USASP2015138482

PATIENT
  Age: 45 Year
  Sex: Male

DRUGS (1)
  1. ENBREL [Suspect]
     Active Substance: ETANERCEPT
     Indication: PSORIATIC ARTHROPATHY
     Dosage: 50 MG, ONCE A WEEK
     Route: 065
     Dates: start: 201506

REACTIONS (5)
  - Injection site extravasation [Unknown]
  - Injection site haemorrhage [Unknown]
  - Device issue [Unknown]
  - Device malfunction [Unknown]
  - Nervousness [Unknown]

NARRATIVE: CASE EVENT DATE: 2015
